FAERS Safety Report 7607264-1 (Version None)
Quarter: 2011Q3

REPORT INFORMATION
  Report Type: 
  Country: None (occurrence: None)
  Receive Date: 20110712
  Receipt Date: 20110712
  Transmission Date: 20111222
  Serious: Yes (Hospitalization, Other)
  Sender: FDA-Public Use
  Company Number: None

PATIENT
  Age: 15 Year
  Sex: Female
  Weight: 63.5036 kg

DRUGS (2)
  1. LAMICTAL [Suspect]
     Indication: DEPRESSION
     Dosage: 200MG ONE TIME DAILY PO
     Route: 048
     Dates: start: 20110512, end: 20110702
  2. LAMICTAL [Suspect]
     Indication: OBSESSIVE-COMPULSIVE DISORDER
     Dosage: 200MG ONE TIME DAILY PO
     Route: 048
     Dates: start: 20110512, end: 20110702

REACTIONS (5)
  - PAIN [None]
  - AGITATION [None]
  - DRUG WITHDRAWAL SYNDROME [None]
  - STEVENS-JOHNSON SYNDROME [None]
  - FATIGUE [None]
